FAERS Safety Report 9344908 (Version 1)
Quarter: 2013Q2

REPORT INFORMATION
  Report Type: Report from Study
  Country: US (occurrence: US)
  Receive Date: 20130612
  Receipt Date: 20130612
  Transmission Date: 20140414
  Serious: Yes (Hospitalization)
  Sender: FDA-Public Use
  Company Number: US-ABBOTT-13P-163-1101320-00

PATIENT
  Age: 61 Year
  Sex: Female
  Weight: 76.73 kg

DRUGS (15)
  1. HUMIRA [Suspect]
     Indication: PSORIATIC ARTHROPATHY
     Dates: start: 200904, end: 201110
  2. HUMIRA [Suspect]
     Dates: start: 201304
  3. MOBIC [Concomitant]
     Indication: PSORIATIC ARTHROPATHY
  4. GABAPENTIN [Concomitant]
     Indication: CARPAL TUNNEL SYNDROME
  5. AMITRIPYLINE [Concomitant]
     Indication: PAIN
  6. AMITRIPYLINE [Concomitant]
     Indication: INSOMNIA
  7. ATENOLOL [Concomitant]
     Indication: HYPERTENSION
  8. NEXIUM [Concomitant]
     Indication: GASTROOESOPHAGEAL REFLUX DISEASE
  9. ZOPIDEM [Concomitant]
     Indication: INSOMNIA
  10. DOVONEX CREAM [Concomitant]
     Indication: PSORIASIS
  11. CLOBETASOL CREAM [Concomitant]
     Indication: PSORIASIS
  12. ADVAIR [Concomitant]
     Indication: BRONCHIECTASIS
  13. ITRATROPIUM [Concomitant]
     Indication: BRONCHIECTASIS
  14. FLUTICASONE PROPIANATE [Concomitant]
     Indication: BRONCHIECTASIS
  15. HYDROCODONE [Concomitant]
     Indication: PAIN

REACTIONS (4)
  - Spinal osteoarthritis [Recovering/Resolving]
  - Back pain [Not Recovered/Not Resolved]
  - Pain in extremity [Not Recovered/Not Resolved]
  - Pain in extremity [Not Recovered/Not Resolved]
